FAERS Safety Report 7340184-9 (Version None)
Quarter: 2011Q1

REPORT INFORMATION
  Report Type: 
  Country: None (occurrence: None)
  Receive Date: 20110309
  Receipt Date: 20110303
  Transmission Date: 20110831
  Serious: Yes (Other)
  Sender: FDA-Public Use
  Company Number: JP-GENZYME-FLUD-1000853

PATIENT
  Age: 46 Year
  Sex: Male

DRUGS (14)
  1. FLUDARA [Suspect]
     Indication: STEM CELL TRANSPLANT
     Dosage: 30 MG/M2, QD FROM DAY -6 TO -3
     Route: 065
  2. LEVOFLOXACIN [Concomitant]
     Indication: ANTIFUNGAL PROPHYLAXIS
     Dosage: UNK
     Route: 065
  3. GANCICLOVIR [Concomitant]
     Indication: CYTOMEGALOVIRUS TEST
     Dosage: UNK
     Route: 065
  4. CYCLOSPORINE [Concomitant]
     Route: 048
  5. FLUCONAZOLE [Concomitant]
     Indication: ANTIFUNGAL PROPHYLAXIS
     Dosage: UNK
     Route: 065
  6. METHOTREXATE [Concomitant]
     Indication: PROPHYLAXIS AGAINST GRAFT VERSUS HOST DISEASE
     Dosage: 10 MG/M2 ON DAY 1
     Route: 065
  7. METHOTREXATE [Concomitant]
     Dosage: 7 MG/M2 ON DAYS 3 AND 6
     Route: 065
  8. CYCLOSPORINE [Concomitant]
     Indication: PROPHYLAXIS AGAINST GRAFT VERSUS HOST DISEASE
     Dosage: 3 MG/KG, QD FROM DAY -1
     Route: 042
  9. SULFAMETHOXAZOLE W [Concomitant]
     Indication: ANTIFUNGAL PROPHYLAXIS
     Dosage: UNK
     Route: 065
  10. ACYCLOVIR [Concomitant]
     Indication: PRODUCT USED FOR UNKNOWN INDICATION
     Dosage: 1000 MG, QD FROM DAY -7 TO 35
     Route: 065
  11. ANTI-THYMOCYTE GLOBULIN NOS [Suspect]
     Indication: STEM CELL TRANSPLANT
     Dosage: 2.5 MG/KG, QD FROM DAY -5 TO -2
     Route: 065
  12. CYCLOPHOSPHAMIDE [Suspect]
     Indication: STEM CELL TRANSPLANT
     Dosage: 25 MG/KG, QD FROM DAY -6 TO DAY -3
     Route: 065
  13. ACYCLOVIR [Concomitant]
     Dosage: 200 MG, QD
     Route: 065
  14. FILGRASTIM [Concomitant]
     Indication: NEUTROPENIA
     Dosage: 300 MCG/DAY, UNK
     Route: 065

REACTIONS (3)
  - ACUTE GRAFT VERSUS HOST DISEASE [None]
  - CYTOMEGALOVIRUS TEST POSITIVE [None]
  - CHRONIC GRAFT VERSUS HOST DISEASE [None]
